FAERS Safety Report 13453691 (Version 1)
Quarter: 2017Q2

REPORT INFORMATION
  Report Type: Spontaneous
  Country: US (occurrence: US)
  Receive Date: 20170418
  Receipt Date: 20170418
  Transmission Date: 20170830
  Serious: No
  Sender: FDA-Public Use
  Company Number: US-ALLERGAN-1659530US

PATIENT
  Age: 60 Year
  Sex: Female

DRUGS (3)
  1. LATISSE [Suspect]
     Active Substance: BIMATOPROST
     Indication: MADAROSIS
     Route: 003
  2. VISINE [Concomitant]
     Active Substance: TETRAHYDROZOLINE HYDROCHLORIDE
     Indication: SEASONAL ALLERGY
     Dosage: UNK
     Route: 047
  3. LASTACAFT [Concomitant]
     Active Substance: ALCAFTADINE
     Indication: SEASONAL ALLERGY
     Dosage: UNK
     Route: 047

REACTIONS (6)
  - Eye disorder [Not Recovered/Not Resolved]
  - Incorrect route of drug administration [Unknown]
  - Off label use [Unknown]
  - Product label confusion [Unknown]
  - Eye irritation [Not Recovered/Not Resolved]
  - Ocular hyperaemia [Not Recovered/Not Resolved]

NARRATIVE: CASE EVENT DATE: 20160607
